FAERS Safety Report 9239302 (Version 1)
Quarter: 2013Q2

REPORT INFORMATION
  Report Type: Report from Study
  Country: US (occurrence: US)
  Receive Date: 20130418
  Receipt Date: 20130418
  Transmission Date: 20140414
  Serious: No
  Sender: FDA-Public Use
  Company Number: US-009507513-1207USA011733

PATIENT
  Sex: Male

DRUGS (5)
  1. REBETOL [Suspect]
     Indication: CHRONIC HEPATITIS C
     Dosage: 1200 MG, QD
     Dates: start: 20120324
  2. REBETOL [Suspect]
     Indication: HIV INFECTION
  3. PEGINTERFERON ALFA-2A [Suspect]
     Indication: CHRONIC HEPATITIS C
     Dosage: 135 MICROGRAM, QW
     Route: 058
     Dates: start: 20120324
  4. PEGINTERFERON ALFA-2A [Suspect]
     Indication: HIV INFECTION
  5. BOCEPREVIR [Suspect]
     Indication: CHRONIC HEPATITIS C
     Dosage: UNK

REACTIONS (5)
  - Influenza like illness [Unknown]
  - Dizziness [Unknown]
  - Sluggishness [Recovering/Resolving]
  - Fatigue [Unknown]
  - White blood cell count decreased [Unknown]
